FAERS Safety Report 9322122 (Version 3)
Quarter: 2013Q3

REPORT INFORMATION
  Report Type: Report from Study
  Country: FR (occurrence: FR)
  Receive Date: 20130531
  Receipt Date: 20130710
  Transmission Date: 20140515
  Serious: Yes (Other)
  Sender: FDA-Public Use
  Company Number: FR-PFIZER INC-2013163163

PATIENT
  Age: 88 Year
  Sex: Female

DRUGS (3)
  1. IRBESARTAN [Suspect]
     Dosage: 300 MG, DAILY
  2. GLIMEPIRIDE [Interacting]
     Dosage: 4 MG, DAILY
     Route: 065
  3. PANTOPRAZOLE [Interacting]
     Dosage: 20 MG, DAILY

REACTIONS (3)
  - Drug interaction [Unknown]
  - Malaise [Unknown]
  - Hyponatraemia [Unknown]
